FAERS Safety Report 6562029-7 (Version None)
Quarter: 2010Q1

REPORT INFORMATION
  Report Type: 
  Country: None (occurrence: None)
  Receive Date: 20100130
  Receipt Date: 20091116
  Transmission Date: 20100710
  Serious: No
  Sender: FDA-Public Use
  Company Number: US-ABBOTT-09P-163-0600915-00

PATIENT
  Sex: Female
  Weight: 77.18 kg

DRUGS (14)
  1. HUMIRA [Suspect]
     Indication: CROHN'S DISEASE
     Route: 058
     Dates: start: 20080101, end: 20080101
  2. HUMIRA [Suspect]
     Indication: PSORIASIS
     Route: 058
     Dates: start: 20080101, end: 20090923
  3. HUMIRA [Suspect]
     Indication: PSORIATIC ARTHROPATHY
     Route: 058
     Dates: start: 20090923
  4. TOPROL-XL [Concomitant]
     Indication: HYPERTENSION
     Dosage: DAILY
  5. AVAPRO [Concomitant]
     Indication: HYPERTENSION
     Dosage: DAILY
  6. HYDROCHLOROTHIAZIDE [Concomitant]
     Indication: HYPERTENSION
  7. SPIRONOLACTONE [Concomitant]
     Indication: HYPERTENSION
     Dosage: DAILY
  8. NEXIUM [Concomitant]
     Indication: GASTROOESOPHAGEAL REFLUX DISEASE
     Dosage: DAILY
  9. SINUS RINSE [Concomitant]
     Indication: SEASONAL ALLERGY
     Route: 045
  10. ALLERTEC [Concomitant]
     Indication: SEASONAL ALLERGY
  11. TRAMADOL [Concomitant]
     Indication: ARTHRALGIA
     Dates: start: 19990101
  12. TRAMADOL [Concomitant]
     Indication: MUSCULOSKELETAL STIFFNESS
  13. LORA TAB [Concomitant]
     Indication: ARTHRALGIA
     Dates: start: 20070101
  14. LORA TAB [Concomitant]
     Indication: MUSCULOSKELETAL STIFFNESS

REACTIONS (8)
  - CROHN'S DISEASE [None]
  - DRUG INEFFECTIVE [None]
  - INJECTION SITE HAEMORRHAGE [None]
  - INJECTION SITE PAIN [None]
  - OROPHARYNGEAL BLISTERING [None]
  - PSORIASIS [None]
  - PSORIATIC ARTHROPATHY [None]
  - RHINORRHOEA [None]
